FAERS Safety Report 5298382-4 (Version None)
Quarter: 2007Q2

REPORT INFORMATION
  Report Type: 
  Country: None (occurrence: None)
  Receive Date: 20070416
  Receipt Date: 20070404
  Transmission Date: 20071010
  Serious: Yes (Hospitalization)
  Sender: FDA-Public Use
  Company Number: AT-PFIZER INC-2007027343

PATIENT
  Age: 50 Year
  Sex: Female

DRUGS (4)
  1. ZELDOX (CAPSULES) [Suspect]
     Indication: MUNCHAUSEN'S SYNDROME
     Route: 048
  2. XANOR [Suspect]
  3. HALDOL [Suspect]
     Indication: MUNCHAUSEN'S SYNDROME
  4. VENLAFAXINE HCL [Suspect]

REACTIONS (2)
  - SUICIDAL BEHAVIOUR [None]
  - UNEVALUABLE EVENT [None]
